FAERS Safety Report 23745553 (Version 1)
Quarter: 2024Q2

REPORT INFORMATION
  Report Type: Spontaneous
  Country: US (occurrence: US)
  Receive Date: 20240416
  Receipt Date: 20240416
  Transmission Date: 20240715
  Serious: No
  Sender: FDA-Public Use
  Company Number: US-ALKEM LABORATORIES LIMITED-US-ALKEM-2024-02001

PATIENT
  Age: 57 Year
  Sex: Female

DRUGS (14)
  1. ARIPIPRAZOLE [Suspect]
     Active Substance: ARIPIPRAZOLE
     Indication: Bipolar disorder
     Dosage: 5 MG/DAY
     Route: 048
  2. ARIPIPRAZOLE [Suspect]
     Active Substance: ARIPIPRAZOLE
     Indication: Generalised anxiety disorder
     Dosage: 10 MG/DAY (TITRATED)
     Route: 065
  3. ARIPIPRAZOLE [Suspect]
     Active Substance: ARIPIPRAZOLE
     Dosage: 20 MG/DAY (INCREASED)
     Route: 065
  4. ARIPIPRAZOLE [Suspect]
     Active Substance: ARIPIPRAZOLE
     Dosage: 10 MG/DAY (DECREASED)
     Route: 065
  5. OLANZAPINE [Suspect]
     Active Substance: OLANZAPINE
     Indication: Bipolar I disorder
     Dosage: UNK
     Route: 065
  6. OLANZAPINE [Suspect]
     Active Substance: OLANZAPINE
     Indication: Generalised anxiety disorder
  7. CLONAZEPAM [Suspect]
     Active Substance: CLONAZEPAM
     Indication: Bipolar I disorder
     Dosage: UNK
     Route: 065
  8. CLONAZEPAM [Suspect]
     Active Substance: CLONAZEPAM
     Indication: Generalised anxiety disorder
  9. LITHIUM [Suspect]
     Active Substance: LITHIUM
     Indication: Bipolar I disorder
     Dosage: UNK
     Route: 065
  10. LITHIUM [Suspect]
     Active Substance: LITHIUM
     Indication: Generalised anxiety disorder
  11. RISPERIDONE [Suspect]
     Active Substance: RISPERIDONE
     Indication: Bipolar I disorder
     Dosage: UNK
     Route: 065
  12. RISPERIDONE [Suspect]
     Active Substance: RISPERIDONE
     Indication: Generalised anxiety disorder
  13. VALPROIC ACID [Suspect]
     Active Substance: VALPROIC ACID
     Indication: Bipolar I disorder
     Dosage: UNK
     Route: 065
  14. VALPROIC ACID [Suspect]
     Active Substance: VALPROIC ACID
     Indication: Generalised anxiety disorder

REACTIONS (2)
  - Gambling [Recovering/Resolving]
  - Weight increased [Unknown]
